FAERS Safety Report 5535033-5 (Version None)
Quarter: 2007Q4

REPORT INFORMATION
  Report Type: 
  Country: None (occurrence: None)
  Receive Date: 20071130
  Receipt Date: 20071119
  Transmission Date: 20080405
  Serious: Yes (Hospitalization)
  Sender: FDA-Public Use
  Company Number: 2007BI009263

PATIENT
  Age: 60 Year
  Sex: Male

DRUGS (1)
  1. AVONEX [Suspect]
     Indication: MULTIPLE SCLEROSIS
     Dosage: 30 UG QW IM
     Route: 030
     Dates: start: 20050526

REACTIONS (6)
  - DECUBITUS ULCER [None]
  - DIALYSIS [None]
  - INFECTION [None]
  - OPEN WOUND [None]
  - RENAL FAILURE [None]
  - SKIN LESION [None]
